FAERS Safety Report 13690985 (Version 1)
Quarter: 2017Q2

REPORT INFORMATION
  Report Type: Spontaneous
  Country: US (occurrence: US)
  Receive Date: 20170626
  Receipt Date: 20170626
  Transmission Date: 20170830
  Serious: Yes (Hospitalization, Other)
  Sender: FDA-Public Use
  Company Number: US-ROCHE-1003787

PATIENT
  Sex: Female

DRUGS (1)
  1. CELLCEPT [Suspect]
     Active Substance: MYCOPHENOLATE MOFETIL\MYCOPHENOLATE MOFETIL HYDROCHLORIDE
     Indication: MYASTHENIA GRAVIS
     Route: 065

REACTIONS (7)
  - Sinusitis [Recovered/Resolved]
  - Vomiting [Recovering/Resolving]
  - Immunosuppression [Unknown]
  - Bronchitis [Recovering/Resolving]
  - Nausea [Recovering/Resolving]
  - Salmonellosis [Recovering/Resolving]
  - Diarrhoea [Recovering/Resolving]
